FAERS Safety Report 7757478-5 (Version None)
Quarter: 2011Q3

REPORT INFORMATION
  Report Type: 
  Country: None (occurrence: None)
  Receive Date: 20110916
  Receipt Date: 20110906
  Transmission Date: 20111222
  Serious: Yes (Death, Life-Threatening, Hospitalization, Disabling, Other)
  Sender: FDA-Public Use
  Company Number: US-BAYER-2011-044737

PATIENT
  Age: 85 Year
  Sex: Female
  Weight: 90.703 kg

DRUGS (4)
  1. ATENOLOL [Concomitant]
  2. AVELOX [Suspect]
     Indication: PNEUMONIA
     Dosage: 400 MG, QD
     Route: 048
     Dates: start: 20101115
  3. AVELOX [Suspect]
     Dosage: UNK
     Route: 042
  4. LOPRESSOR [Concomitant]
     Indication: ATRIAL FIBRILLATION

REACTIONS (4)
  - ATRIAL FIBRILLATION [None]
  - CARDIAC FAILURE [None]
  - PANIC ATTACK [None]
  - DEATH [None]
